FAERS Safety Report 5032596-3 (Version None)
Quarter: 2006Q2

REPORT INFORMATION
  Report Type: 
  Country: None (occurrence: None)
  Receive Date: 20060622
  Receipt Date: 20060612
  Transmission Date: 20061013
  Serious: Yes (Hospitalization)
  Sender: FDA-Public Use
  Company Number: US-JNJFOC-20060403465

PATIENT
  Sex: Male
  Weight: 55.79 kg

DRUGS (12)
  1. REMICADE [Suspect]
     Indication: CROHN'S DISEASE
     Route: 042
  2. M.V.I. [Concomitant]
  3. M.V.I. [Concomitant]
  4. M.V.I. [Concomitant]
  5. M.V.I. [Concomitant]
  6. M.V.I. [Concomitant]
  7. M.V.I. [Concomitant]
  8. M.V.I. [Concomitant]
  9. M.V.I. [Concomitant]
  10. PREDNISONE [Concomitant]
     Indication: CROHN'S DISEASE
  11. ALBUTEROL [Concomitant]
     Indication: ASTHMA
  12. PREVACID [Concomitant]
     Indication: GASTROOESOPHAGEAL REFLUX DISEASE

REACTIONS (5)
  - DISSEMINATED CYTOMEGALOVIRAL INFECTION [None]
  - INFLUENZA LIKE ILLNESS [None]
  - PROCTITIS [None]
  - STREPTOCOCCAL IMPETIGO [None]
  - VIRAL UPPER RESPIRATORY TRACT INFECTION [None]
